FAERS Safety Report 13048695 (Version 1)
Quarter: 2016Q4

REPORT INFORMATION
  Report Type: Spontaneous
  Country: US (occurrence: US)
  Receive Date: 20161220
  Receipt Date: 20161220
  Transmission Date: 20170207
  Serious: Yes (Other)
  Sender: FDA-Public Use
  Company Number: None

PATIENT
  Age: 49 Year
  Sex: Female

DRUGS (1)
  1. GLYXAMBI [Suspect]
     Active Substance: EMPAGLIFLOZIN\LINAGLIPTIN
     Indication: BLOOD GLUCOSE INCREASED
     Dosage: 25MG/5MG ONCE A DAY ORAL
     Route: 048
     Dates: start: 201608, end: 201611

REACTIONS (5)
  - Rash [None]
  - Skin burning sensation [None]
  - Erythema [None]
  - Swelling [None]
  - Skin exfoliation [None]

NARRATIVE: CASE EVENT DATE: 20161111
